FAERS Safety Report 18241842 (Version 1)
Quarter: 2020Q3

REPORT INFORMATION
  Report Type: Spontaneous
  Country: US (occurrence: US)
  Receive Date: 20200904
  Receipt Date: 20200904
  Transmission Date: 20201103
  Serious: Yes (Other)
  Sender: FDA-Public Use
  Company Number: None

PATIENT
  Age: 23 Year
  Sex: Male
  Weight: 80.3 kg

DRUGS (1)
  1. MELOXICAM 15MG [Suspect]
     Active Substance: MELOXICAM
     Indication: ARTHROPATHY
     Route: 048
     Dates: start: 20200619, end: 20200901

REACTIONS (1)
  - Blood urine present [None]

NARRATIVE: CASE EVENT DATE: 20200901
